FAERS Safety Report 21390896 (Version 1)
Quarter: 2022Q3

REPORT INFORMATION
  Report Type: Spontaneous
  Country: US (occurrence: None)
  Receive Date: 20220927
  Receipt Date: 20220927
  Transmission Date: 20221026
  Serious: Yes (Disabling)
  Sender: FDA-Public Use
  Company Number: None

PATIENT
  Sex: Female
  Weight: 65.25 kg

DRUGS (7)
  1. OCREVUS [Suspect]
     Active Substance: OCRELIZUMAB
     Indication: Multiple sclerosis
     Dosage: OTHER FREQUENCY : EVERY 6 MONTHS;?
     Route: 042
     Dates: start: 20201016, end: 20220506
  2. PROVIGIL [Concomitant]
     Active Substance: MODAFINIL
  3. ZANAFLEX [Concomitant]
     Active Substance: TIZANIDINE HYDROCHLORIDE
  4. VITAMIN D3 [Concomitant]
     Active Substance: CHOLECALCIFEROL
  5. Acetyl L-Carnitine [Concomitant]
  6. ALPHA LIPOIC ACID [Concomitant]
  7. GABA 5 HTP [Concomitant]

REACTIONS (2)
  - Balance disorder [None]
  - Mobility decreased [None]
